FAERS Safety Report 24870653 (Version 1)
Quarter: 2025Q1

REPORT INFORMATION
  Report Type: Report from Study
  Country: DE (occurrence: DE)
  Receive Date: 20250121
  Receipt Date: 20250121
  Transmission Date: 20250409
  Serious: Yes (Other)
  Sender: RANBAXY
  Company Number: DE-SUN PHARMACEUTICAL INDUSTRIES LTD-2025R1-489957

PATIENT
  Sex: Male

DRUGS (4)
  1. PYRIDOXINE [Suspect]
     Active Substance: PYRIDOXINE
     Indication: Primary hyperoxaluria
     Route: 065
  2. LEVOTHYROXINE [Suspect]
     Active Substance: LEVOTHYROXINE
     Indication: Primary hyperoxaluria
     Route: 065
  3. ALLOPURINOL [Suspect]
     Active Substance: ALLOPURINOL
     Indication: Primary hyperoxaluria
     Route: 065
  4. SODIUM BICARBONATE [Concomitant]
     Active Substance: SODIUM BICARBONATE
     Indication: Primary hyperoxaluria
     Route: 065

REACTIONS (2)
  - Therapeutic response decreased [Unknown]
  - Pain in extremity [Recovered/Resolved]
